FAERS Safety Report 9758314 (Version 2)
Quarter: 2013Q4

REPORT INFORMATION
  Report Type: Report from Study
  Country: US (occurrence: US)
  Receive Date: 20131216
  Receipt Date: 20131216
  Transmission Date: 20140711
  Serious: Yes (Other)
  Sender: FDA-Public Use
  Company Number: US-ABBVIE-13P-163-1172864-00

PATIENT
  Age: 30 Year
  Sex: Male
  Weight: 59.02 kg

DRUGS (2)
  1. HUMIRA [Suspect]
     Indication: CROHN^S DISEASE
     Dosage: ON TUESDAY
     Dates: start: 201309, end: 201311
  2. HUMIRA [Suspect]
     Dosage: ON TUESDAY
     Dates: start: 20131112

REACTIONS (5)
  - Pelvic venous thrombosis [Unknown]
  - Injection site pain [Not Recovered/Not Resolved]
  - Fistula [Recovering/Resolving]
  - Thrombosis [Not Recovered/Not Resolved]
  - Anal fistula [Unknown]
